FAERS Safety Report 19996475 (Version 1)
Quarter: 2021Q4

REPORT INFORMATION
  Report Type: Spontaneous
  Country: US (occurrence: US)
  Receive Date: 20211026
  Receipt Date: 20211026
  Transmission Date: 20220303
  Serious: No
  Sender: FDA-Public Use
  Company Number: US-BAUSCH-BL-2021-035212

PATIENT
  Age: 75 Year
  Sex: Female

DRUGS (1)
  1. LOTEMAX SM [Suspect]
     Active Substance: LOTEPREDNOL ETABONATE
     Indication: Product used for unknown indication
     Route: 065

REACTIONS (3)
  - Instillation site pain [Unknown]
  - Instillation site foreign body sensation [Unknown]
  - Expired product administered [Unknown]
